FAERS Safety Report 10440910 (Version 2)
Quarter: 2014Q3

REPORT INFORMATION
  Report Type: Spontaneous
  Country: US (occurrence: None)
  Receive Date: 20140905
  Receipt Date: 20140910
  Transmission Date: 20150326
  Serious: No
  Sender: FDA-Public Use
  Company Number: C-14-107

PATIENT
  Sex: Male

DRUGS (3)
  1. VALIUM [Concomitant]
     Active Substance: DIAZEPAM
  2. AMBIEN [Concomitant]
     Active Substance: ZOLPIDEM TARTRATE
  3. OXYCODONE [Suspect]
     Active Substance: OXYCODONE
     Indication: NECK PAIN
     Route: 048

REACTIONS (4)
  - Dyspnoea [None]
  - Regurgitation [None]
  - Vomiting [None]
  - Hiccups [None]
